FAERS Safety Report 4643923-0 (Version None)
Quarter: 2005Q2

REPORT INFORMATION
  Report Type: 
  Country: None (occurrence: None)
  Receive Date: 20050418
  Receipt Date: 20050407
  Transmission Date: 20051028
  Serious: Yes (Hospitalization)
  Sender: FDA-Public Use
  Company Number: 2005-00246

PATIENT
  Age: 76 Year
  Sex: Male

DRUGS (1)
  1. IMMUCYST (BCG - IT (CONNAUGHT)), AVENTIS PASTEUR LTD., LOT NOT REP [Suspect]
     Indication: BLADDER CANCER
     Dosage: (81.0 MG), I.VES., BLADDER
     Dates: start: 20041210, end: 20041210

REACTIONS (2)
  - DISSEMINATED TUBERCULOSIS [None]
  - PYREXIA [None]
